FAERS Safety Report 4844383-7 (Version None)
Quarter: 2005Q4

REPORT INFORMATION
  Report Type: 
  Country: None (occurrence: None)
  Receive Date: 20051202
  Receipt Date: 20051107
  Transmission Date: 20060501
  Serious: Yes (Hospitalization)
  Sender: FDA-Public Use
  Company Number: US-MERCK-0511USA01129

PATIENT
  Age: 60 Year
  Sex: Male
  Weight: 93 kg

DRUGS (7)
  1. VIOXX [Suspect]
     Indication: ARTHRITIS
     Route: 048
  2. ZOCOR [Concomitant]
     Route: 065
  3. ECOTRIN [Concomitant]
     Route: 065
  4. NITROGLYCERIN [Concomitant]
     Route: 065
  5. BUMEX [Concomitant]
     Route: 065
  6. FLOMAX (MORNIFLUMATE) [Concomitant]
     Route: 065
  7. ATENOLOL [Concomitant]
     Route: 065

REACTIONS (6)
  - CARDIAC DISORDER [None]
  - CEREBROVASCULAR ACCIDENT [None]
  - LUNG DISORDER [None]
  - MYOCARDIAL INFARCTION [None]
  - PALPITATIONS [None]
  - PULMONARY OEDEMA [None]
